FAERS Safety Report 5382021-8 (Version None)
Quarter: 2007Q3

REPORT INFORMATION
  Report Type: 
  Country: None (occurrence: None)
  Receive Date: 20070709
  Receipt Date: 20070703
  Transmission Date: 20080115
  Serious: Yes (Death, Other)
  Sender: FDA-Public Use
  Company Number: US-PURDUE-USA_2007_0027682

PATIENT
  Age: 52 Year
  Sex: Male

DRUGS (5)
  1. OXYCONTIN [Suspect]
     Indication: HEADACHE
     Dosage: UNK, UNK
     Dates: start: 19980728
  2. PHENOBARBITAL TAB [Suspect]
     Indication: DRUG USE FOR UNKNOWN INDICATION
     Dosage: 32.4 MG, UNK
  3. DIAZEPAM [Suspect]
     Indication: DRUG USE FOR UNKNOWN INDICATION
     Dosage: 10 MG, UNK
  4. CARBAMAZEPINE [Suspect]
     Indication: DRUG USE FOR UNKNOWN INDICATION
     Dosage: UNK, UNK
  5. DEPAKOTE [Concomitant]
     Dosage: 500 MG, UNK

REACTIONS (7)
  - CORONARY ARTERY DISEASE [None]
  - DRUG DEPENDENCE [None]
  - FLUSHING [None]
  - MULTIPLE DRUG OVERDOSE ACCIDENTAL [None]
  - PRURITUS [None]
  - SCAB [None]
  - SOMNOLENCE [None]
